FAERS Safety Report 20120953 (Version 3)
Quarter: 2022Q4

REPORT INFORMATION
  Report Type: Spontaneous
  Country: CA (occurrence: CA)
  Receive Date: 20211127
  Receipt Date: 20221029
  Transmission Date: 20230112
  Serious: Yes (Hospitalization, Other)
  Sender: FDA-Public Use
  Company Number: CA-CELLTRION INC.-2021CA008174

PATIENT

DRUGS (6)
  1. INFLECTRA [Suspect]
     Active Substance: INFLIXIMAB-DYYB
     Indication: Crohn^s disease
     Dosage: 490 MG, WEEK 0,2,6 AND THEN EVERY 8 WEEKS
     Route: 042
     Dates: start: 20210422, end: 20220309
  2. INFLECTRA [Suspect]
     Active Substance: INFLIXIMAB-DYYB
     Dosage: 490 MG, WEEK 0,2,6 AND THEN EVERY 8 WEEKS
     Route: 042
     Dates: start: 20210506
  3. INFLECTRA [Suspect]
     Active Substance: INFLIXIMAB-DYYB
     Dosage: 490 MG, WEEK 0,2,6 AND THEN EVERY 8 WEEKS
     Route: 042
     Dates: start: 20210727
  4. INFLECTRA [Suspect]
     Active Substance: INFLIXIMAB-DYYB
     Dosage: 490 MG, WEEK 0,2,6 AND THEN EVERY 8 WEEKS
     Route: 042
     Dates: start: 20210921
  5. INFLECTRA [Suspect]
     Active Substance: INFLIXIMAB-DYYB
     Dosage: 700 MG, EVERY 8 WEEKS
     Route: 042
     Dates: start: 20220504
  6. INFLECTRA [Suspect]
     Active Substance: INFLIXIMAB-DYYB
     Dosage: 700 MG, EVERY 8 WEEKS
     Route: 042
     Dates: start: 20221019

REACTIONS (6)
  - Nephrolithiasis [Unknown]
  - Abdominal pain [Unknown]
  - Condition aggravated [Recovered/Resolved]
  - Weight increased [Unknown]
  - Arthralgia [Unknown]
  - COVID-19 [Recovered/Resolved]

NARRATIVE: CASE EVENT DATE: 20210101
